FAERS Safety Report 10458435 (Version 6)
Quarter: 2016Q3

REPORT INFORMATION
  Report Type: Report from Study
  Country: BE (occurrence: BE)
  Receive Date: 20140917
  Receipt Date: 20160812
  Transmission Date: 20161109
  Serious: Yes (Hospitalization)
  Sender: FDA-Public Use
  Company Number: BE-ROCHE-1453491

PATIENT
  Age: 73 Year
  Sex: Female

DRUGS (5)
  1. RANIBIZUMAB [Suspect]
     Active Substance: RANIBIZUMAB
     Route: 050
     Dates: start: 20150903
  2. RANIBIZUMAB [Suspect]
     Active Substance: RANIBIZUMAB
     Dosage: RIGHT EYE
     Route: 050
     Dates: start: 20140515, end: 20140515
  3. RANIBIZUMAB [Suspect]
     Active Substance: RANIBIZUMAB
     Indication: NEOVASCULAR AGE-RELATED MACULAR DEGENERATION
     Dosage: LEFT EYE
     Route: 050
     Dates: start: 20140303
  4. RANIBIZUMAB [Suspect]
     Active Substance: RANIBIZUMAB
     Dosage: LEFT EYE?DATE OF LAST DOSE PRIOR TO EVENT: 31/JUL/2014
     Route: 050
     Dates: start: 20140731
  5. RANIBIZUMAB [Suspect]
     Active Substance: RANIBIZUMAB
     Dosage: RIGHT EYE
     Route: 050
     Dates: start: 20140313

REACTIONS (6)
  - Cataract [Recovered/Resolved]
  - Product use issue [Unknown]
  - Choroidal haemorrhage [Unknown]
  - Retinal haemorrhage [Unknown]
  - Vitreous haemorrhage [Unknown]
  - Vitreous haemorrhage [Unknown]

NARRATIVE: CASE EVENT DATE: 20140701
